FAERS Safety Report 11005831 (Version 3)
Quarter: 2015Q2

REPORT INFORMATION
  Report Type: Spontaneous
  Country: US (occurrence: US)
  Receive Date: 20150409
  Receipt Date: 20150624
  Transmission Date: 20150821
  Serious: Yes (Hospitalization, Other)
  Sender: FDA-Public Use
  Company Number: US-009507513-1504USA003811

PATIENT
  Sex: Female
  Weight: 99.77 kg

DRUGS (4)
  1. BYETTA [Suspect]
     Active Substance: EXENATIDE
     Dosage: 10 MICROGRAM, BID
     Dates: start: 20070531, end: 20100201
  2. JANUMET [Suspect]
     Active Substance: METFORMIN HYDROCHLORIDE\SITAGLIPTIN PHOSPHATE
     Dosage: 50/500 MG, BID
     Route: 048
     Dates: start: 20090403, end: 20090606
  3. VICTOZA [Suspect]
     Active Substance: LIRAGLUTIDE
     Dosage: 1.8 MG, BID
     Dates: start: 20110524, end: 20111125
  4. JANUMET [Suspect]
     Active Substance: METFORMIN HYDROCHLORIDE\SITAGLIPTIN PHOSPHATE
     Indication: TYPE 2 DIABETES MELLITUS
     Dosage: 50/500MG, QD
     Route: 048
     Dates: start: 20080215, end: 20090606

REACTIONS (20)
  - Goitre [Unknown]
  - Malignant breast lump removal [Unknown]
  - Intraductal papillary mucinous neoplasm [Unknown]
  - Breast reconstruction [Unknown]
  - Pancreaticoduodenectomy [Unknown]
  - Herpes simplex [Not Recovered/Not Resolved]
  - Lumbar spinal stenosis [Unknown]
  - Diverticulum intestinal [Unknown]
  - Breast cancer [Unknown]
  - Mastectomy [Unknown]
  - Sciatica [Unknown]
  - Adrenal disorder [Unknown]
  - Intervertebral disc degeneration [Unknown]
  - Adenocarcinoma pancreas [Unknown]
  - Cheilitis [Not Recovered/Not Resolved]
  - Hepatic steatosis [Unknown]
  - Arteriosclerosis [Unknown]
  - Spinal osteoarthritis [Unknown]
  - Uterine leiomyoma [Unknown]
  - Borderline glaucoma [Unknown]

NARRATIVE: CASE EVENT DATE: 20100217
